FAERS Safety Report 6655960-5 (Version None)
Quarter: 2010Q1

REPORT INFORMATION
  Report Type: 
  Country: None (occurrence: None)
  Receive Date: 20100329
  Receipt Date: 20100319
  Transmission Date: 20100710
  Serious: Yes (Hospitalization, Other)
  Sender: FDA-Public Use
  Company Number: PHHY2010MX07682

PATIENT
  Age: 79 Year
  Sex: Female

DRUGS (8)
  1. DIOVAN [Suspect]
     Indication: HYPERTENSION
     Dosage: 1 AND HALF  TABLET (160 MG) DAILY
     Route: 048
     Dates: start: 20050201, end: 20100210
  2. DIOVAN [Suspect]
     Dosage: HALF TABLET PER DAY
     Dates: start: 20100210
  3. CEPHALEXIN [Concomitant]
  4. TAILES [Concomitant]
  5. CIPLOT [Concomitant]
  6. OMETRAZOL [Concomitant]
  7. FUROSEMIDE [Concomitant]
  8. NIFEDIPINE [Concomitant]

REACTIONS (5)
  - BREAST CANCER [None]
  - BREAST OPERATION [None]
  - BRONCHITIS [None]
  - MASTECTOMY [None]
  - RENAL FAILURE [None]
